FAERS Safety Report 8789906 (Version 1)
Quarter: 2012Q4

REPORT INFORMATION
  Report Type: 
  Country: US (occurrence: US)
  Receive Date: 20120917
  Receipt Date: 20120917
  Transmission Date: 20130627
  Serious: No
  Sender: FDA-Public Use
  Company Number: US-PFIZER INC-2012223058

PATIENT
  Age: 62 Year
  Sex: Female

DRUGS (7)
  1. ZITHROMAX [Suspect]
     Indication: RHINORRHOEA
     Dosage: UNK
  2. ZITHROMAX [Suspect]
     Indication: COUGH
  3. BACTRIM [Suspect]
     Indication: RHINORRHOEA
     Dosage: UNK
  4. BACTRIM [Suspect]
     Indication: COUGH
  5. HUMIRA 40 MG/0.8 ML PEN [Suspect]
     Indication: RHEUMATOID ARTHRITIS
     Dosage: UNK
     Dates: start: 2011, end: 201201
  6. HUMIRA 40 MG/0.8 ML PEN [Suspect]
     Dosage: UNK
     Dates: start: 201206
  7. ARAVA [Concomitant]
     Dosage: UNK

REACTIONS (8)
  - Diarrhoea [Unknown]
  - Abdominal pain upper [Unknown]
  - Faecal incontinence [Unknown]
  - Mycotic allergy [Unknown]
  - Allergy to plants [Unknown]
  - Allergy to animal [Unknown]
  - Rhinorrhoea [Unknown]
  - Cough [Unknown]
